FAERS Safety Report 19021029 (Version 1)
Quarter: 2021Q1

REPORT INFORMATION
  Report Type: Spontaneous
  Country: US (occurrence: US)
  Receive Date: 20210317
  Receipt Date: 20210317
  Transmission Date: 20210420
  Serious: Yes (Other)
  Sender: FDA-Public Use
  Company Number: US-PFIZER INC-2021282807

PATIENT
  Age: 86 Year
  Sex: Female

DRUGS (1)
  1. PHENYTOIN. [Suspect]
     Active Substance: PHENYTOIN
     Dosage: 100 MG

REACTIONS (4)
  - Headache [Unknown]
  - Seizure [Unknown]
  - Hypoacusis [Unknown]
  - Drug ineffective [Unknown]
